FAERS Safety Report 17454315 (Version 1)
Quarter: 2020Q1

REPORT INFORMATION
  Report Type: Spontaneous
  Country: US (occurrence: US)
  Receive Date: 20200225
  Receipt Date: 20200225
  Transmission Date: 20200409
  Serious: Yes (Hospitalization, Other)
  Sender: FDA-Public Use
  Company Number: US-TEVA-2020-US-1188725

PATIENT
  Sex: Female
  Weight: 95.25 kg

DRUGS (13)
  1. COPAXONE [Suspect]
     Active Substance: GLATIRAMER ACETATE
     Dosage: THREE TIMES A WEEK
     Route: 065
  2. COENZYME B COMPLEX [Concomitant]
     Route: 065
  3. COPAXONE [Suspect]
     Active Substance: GLATIRAMER ACETATE
     Indication: MULTIPLE SCLEROSIS
     Dosage: 20 MILLIGRAM/MILLILITERS DAILY;
     Route: 065
     Dates: start: 2010
  4. ADVIL [Concomitant]
     Active Substance: IBUPROFEN
     Route: 065
  5. PROMETHAZINE [Concomitant]
     Active Substance: PROMETHAZINE HYDROCHLORIDE
     Dosage: 1 TAB PO PRN
     Route: 048
  6. FAMOTIDINE. [Concomitant]
     Active Substance: FAMOTIDINE
     Route: 065
  7. MIRENA [Concomitant]
     Active Substance: LEVONORGESTREL
  8. GABAPENTIN. [Concomitant]
     Active Substance: GABAPENTIN
     Dosage: HALF -1 PILL BID TO TID
     Route: 065
  9. METAXALONE. [Concomitant]
     Active Substance: METAXALONE
     Dosage: 1 TAB PO ONCE TO TID
     Route: 065
  10. MIRALAX [Concomitant]
     Active Substance: POLYETHYLENE GLYCOL 3350
     Dosage: 2 CAPS QPM
     Route: 065
  11. VITAMIN D3 [Concomitant]
     Active Substance: CHOLECALCIFEROL
     Dosage: 1000 IU (INTERNATIONAL UNIT) DAILY;
     Route: 065
  12. NALTREXONE [Concomitant]
     Active Substance: NALTREXONE
     Route: 065
  13. BABY ASPIRIN [Concomitant]
     Active Substance: ASPIRIN

REACTIONS (6)
  - Chest pain [Unknown]
  - Deep vein thrombosis [Unknown]
  - Multiple sclerosis [Unknown]
  - Thrombosis [Unknown]
  - Multiple sclerosis relapse [Unknown]
  - Product storage error [Unknown]
